FAERS Safety Report 20637501 (Version 1)
Quarter: 2022Q1

REPORT INFORMATION
  Report Type: Spontaneous
  Country: US (occurrence: None)
  Receive Date: 20220324
  Receipt Date: 20220324
  Transmission Date: 20220423
  Serious: Yes (Death)
  Sender: FDA-Public Use
  Company Number: None

PATIENT
  Age: 22 Year
  Sex: Male
  Weight: 72.57 kg

DRUGS (1)
  1. ZYPREXA RELPREVV [Suspect]
     Active Substance: OLANZAPINE PAMOATE
     Route: 030

REACTIONS (3)
  - Injection related reaction [None]
  - Patient restraint [None]
  - Refusal of treatment by patient [None]

NARRATIVE: CASE EVENT DATE: 20160816
